FAERS Safety Report 6290880-X (Version None)
Quarter: 2009Q3

REPORT INFORMATION
  Report Type: 
  Country: None (occurrence: None)
  Receive Date: 20090730
  Receipt Date: 20090717
  Transmission Date: 20100115
  Serious: Yes (Other)
  Sender: FDA-Public Use
  Company Number: US-PFIZER INC-2009170610

PATIENT
  Sex: Female
  Weight: 97.052 kg

DRUGS (36)
  1. CHANTIX [Suspect]
     Indication: SMOKING CESSATION THERAPY
     Dosage: 1 MG, 2X/DAY
     Dates: start: 20090201
  2. CHANTIX [Suspect]
     Dosage: UNK
     Dates: start: 20090213
  3. FIORICET W/ CODEINE [Concomitant]
     Dosage: UNK
  4. RANITIDINE [Concomitant]
     Indication: GASTROOESOPHAGEAL REFLUX DISEASE
     Dosage: UNK
  5. PROTONIX [Concomitant]
     Indication: GASTROOESOPHAGEAL REFLUX DISEASE
     Dosage: UNK
  6. LASIX [Concomitant]
     Dosage: UNK
  7. BETHANECHOL [Concomitant]
     Indication: URINARY RETENTION
     Dosage: 25 MG, 4X/DAY
  8. PERCOCET [Concomitant]
     Dosage: UNK
  9. TRICOR [Concomitant]
     Dosage: UNK
  10. COMPAZINE [Concomitant]
     Dosage: UNK
  11. ZOFRAN [Concomitant]
     Indication: NAUSEA
     Dosage: UNK
  12. REGLAN [Concomitant]
     Indication: NAUSEA
     Dosage: UNK
  13. REGLAN [Concomitant]
     Indication: GASTROOESOPHAGEAL REFLUX DISEASE
  14. TOPAMAX [Concomitant]
     Dosage: UNK
  15. SIMVASTATIN [Concomitant]
     Dosage: UNK
  16. LEVOTHYROXINE [Concomitant]
     Indication: HYPOTHYROIDISM
     Dosage: UNK
  17. LEVOTHYROXINE [Concomitant]
     Indication: THYROID DISORDER
  18. SERTRALINE [Concomitant]
     Dosage: 200 MG, 1X/DAY
  19. HUMALOG [Concomitant]
     Indication: DIABETES MELLITUS
     Dosage: UNK
  20. LANTUS [Concomitant]
     Indication: DIABETES MELLITUS
     Dosage: UNK
  21. KLONOPIN [Concomitant]
     Indication: BIPOLAR I DISORDER
  22. CLARITIN [Concomitant]
     Indication: SINUS DISORDER
     Dosage: UNK
  23. ZOCOR [Concomitant]
     Dosage: UNK
  24. CIPROFLOXACIN [Concomitant]
     Dosage: UNK
  25. SYNTHROID [Concomitant]
     Dosage: UNK
  26. NEURONTIN [Concomitant]
     Dosage: UNK
  27. VALIUM [Concomitant]
     Dosage: UNK
  28. ZYPREXA [Concomitant]
     Dosage: UNK
  29. INSULIN [Concomitant]
     Dosage: UNK
  30. LOMOTIL [Concomitant]
     Dosage: UNK
  31. ENALAPRIL MALEATE [Concomitant]
     Dosage: UNK
  32. ZOLOFT [Concomitant]
  33. FIORICET [Concomitant]
  34. DIPHENOXYLATE HCL AND ATROPINE SULFATE [Concomitant]
     Indication: DIARRHOEA
     Dosage: UNK
  35. DILAUDID [Concomitant]
     Dosage: 4 MG, EVERY SIX HOURS
  36. MORPHINE SULFATE [Concomitant]
     Dosage: 15 MG, EVERY SIX HOURS

REACTIONS (5)
  - BIPOLAR I DISORDER [None]
  - BLOOD GLUCOSE DECREASED [None]
  - DIABETES MELLITUS INADEQUATE CONTROL [None]
  - GASTROOESOPHAGEAL REFLUX DISEASE [None]
  - URINARY TRACT INFECTION [None]
